FAERS Safety Report 23975651 (Version 2)
Quarter: 2025Q2

REPORT INFORMATION
  Report Type: Spontaneous
  Country: US (occurrence: US)
  Receive Date: 20240614
  Receipt Date: 20250526
  Transmission Date: 20250716
  Serious: No
  Sender: SANOFI AVENTIS
  Company Number: US-SA-SAC20240611000347

PATIENT
  Age: 73 Year
  Sex: Male

DRUGS (1)
  1. DUPIXENT [Suspect]
     Active Substance: DUPILUMAB
     Indication: Dermatitis atopic
     Dosage: 300 MG, QOW
     Route: 058
     Dates: start: 202405

REACTIONS (6)
  - Pain [Unknown]
  - Muscle spasms [Unknown]
  - Gait disturbance [Unknown]
  - Dizziness [Unknown]
  - Herpes virus infection [Unknown]
  - Eczema [Unknown]

NARRATIVE: CASE EVENT DATE: 20240101
